FAERS Safety Report 19489234 (Version 1)
Quarter: 2021Q3

REPORT INFORMATION
  Report Type: Spontaneous
  Country: GB (occurrence: GB)
  Receive Date: 20210703
  Receipt Date: 20210703
  Transmission Date: 20211014
  Serious: Yes (Other)
  Sender: FDA-Public Use
  Company Number: GB-ACCORD-230076

PATIENT
  Age: 70 Year
  Sex: Male

DRUGS (3)
  1. AMLODIPINE [Suspect]
     Active Substance: AMLODIPINE BESYLATE
     Indication: HYPERTENSION
     Dosage: 5 MG ONCE PER DAY
     Route: 048
     Dates: start: 20210607, end: 20210614
  2. LAMOTRIGINE. [Concomitant]
     Active Substance: LAMOTRIGINE
     Indication: ILL-DEFINED DISORDER
  3. PRIMIDONE. [Interacting]
     Active Substance: PRIMIDONE
     Indication: ILL-DEFINED DISORDER

REACTIONS (3)
  - Drug interaction [Unknown]
  - Balance disorder [Recovered/Resolved]
  - Blood pressure increased [Recovered/Resolved]

NARRATIVE: CASE EVENT DATE: 20210614
